FAERS Safety Report 19591967 (Version 1)
Quarter: 2021Q3

REPORT INFORMATION
  Report Type: Other
  Country: PL (occurrence: PL)
  Receive Date: 20210722
  Receipt Date: 20210722
  Transmission Date: 20211014
  Serious: Yes (Other)
  Sender: FDA-Public Use
  Company Number: PL-CELLTRION INC.-2021PL009488

PATIENT

DRUGS (2)
  1. RITUXIMAB (UNKNOWN) [Suspect]
     Active Substance: RITUXIMAB
     Indication: PRODUCT USED FOR UNKNOWN INDICATION
     Dosage: 4 DOSES
     Route: 041
  2. CELLCEPT [Suspect]
     Active Substance: MYCOPHENOLATE MOFETIL\MYCOPHENOLATE MOFETIL HYDROCHLORIDE
     Indication: PRODUCT USED FOR UNKNOWN INDICATION
     Dosage: 2 X 300 MG/M2 (4?8 WEEKS)
     Route: 048

REACTIONS (5)
  - Forearm fracture [Unknown]
  - Traumatic haematoma [Unknown]
  - Haematoma [Unknown]
  - Haemarthrosis [Unknown]
  - Central venous catheterisation [Unknown]

NARRATIVE: CASE EVENT DATE: 201608
